FAERS Safety Report 11667307 (Version 5)
Quarter: 2015Q4

REPORT INFORMATION
  Report Type: Other
  Country: FR (occurrence: JP)
  Receive Date: 20151027
  Receipt Date: 20151209
  Transmission Date: 20160304
  Serious: Yes (Hospitalization, Other)
  Sender: FDA-Public Use
  Company Number: JP-FRI-1000080494

PATIENT
  Age: 49 Year
  Sex: Female
  Weight: 44 kg

DRUGS (8)
  1. MILNACIPRAN [Suspect]
     Active Substance: MILNACIPRAN
     Dosage: 50 MG
     Route: 048
     Dates: end: 20100825
  2. MAGNESIUM OXIDE. [Concomitant]
     Active Substance: MAGNESIUM OXIDE
     Dosage: 1 GRAM
  3. CONSTANT [Concomitant]
     Dosage: 0.8 MG
     Route: 048
     Dates: end: 20100824
  4. CONSTANT [Concomitant]
     Dosage: 1.2 MG
     Route: 048
     Dates: start: 20100826
  5. REMERON [Suspect]
     Active Substance: MIRTAZAPINE
     Dosage: 45 MG
     Route: 048
     Dates: end: 20100825
  6. ZYPREXA [Suspect]
     Active Substance: OLANZAPINE
     Dosage: 5 MG
     Dates: start: 20100823, end: 20100825
  7. BENZALIN [Concomitant]
     Active Substance: NITRAZEPAM
     Dosage: 5 MG
     Dates: end: 20100824
  8. BENZALIN [Concomitant]
     Active Substance: NITRAZEPAM
     Dosage: 15 MG
     Dates: start: 20100825

REACTIONS (1)
  - Ventricular tachycardia [Recovered/Resolved]

NARRATIVE: CASE EVENT DATE: 20100825
